FAERS Safety Report 24059230 (Version 2)
Quarter: 2024Q3

REPORT INFORMATION
  Report Type: Spontaneous
  Country: GB (occurrence: GB)
  Receive Date: 20240708
  Receipt Date: 20240710
  Transmission Date: 20241016
  Serious: Yes (Other)
  Sender: ABBVIE
  Company Number: None

PATIENT
  Age: 56 Year
  Sex: Female

DRUGS (1)
  1. UPADACITINIB [Suspect]
     Active Substance: UPADACITINIB
     Indication: Rheumatoid arthritis
     Dosage: 15MG OD
     Route: 048
     Dates: start: 20231001, end: 20240701

REACTIONS (2)
  - Angina pectoris [Recovering/Resolving]
  - Coronary artery stenosis [Unknown]

NARRATIVE: CASE EVENT DATE: 20240523
